FAERS Safety Report 7404034-4 (Version None)
Quarter: 2011Q2

REPORT INFORMATION
  Report Type: 
  Country: None (occurrence: None)
  Receive Date: 20110408
  Receipt Date: 20110311
  Transmission Date: 20111010
  Serious: Yes (Other)
  Sender: FDA-Public Use
  Company Number: US-BAYER-201037769NA

PATIENT
  Age: 26 Year
  Sex: Female
  Weight: 84 kg

DRUGS (6)
  1. YASMIN [Suspect]
     Dosage: UNK
     Dates: start: 20050301, end: 20051001
  2. YASMIN [Suspect]
     Indication: ACNE
     Route: 048
     Dates: start: 20050329, end: 20081001
  3. YAZ [Suspect]
     Indication: ACNE
     Route: 048
     Dates: start: 20050329, end: 20081001
  4. YAZ [Suspect]
     Dosage: UNK
     Dates: start: 20080601, end: 20081003
  5. YASMIN [Suspect]
     Dosage: UNK
     Dates: start: 20061201, end: 20071001
  6. NSAID'S [Concomitant]

REACTIONS (3)
  - ABDOMINAL PAIN UPPER [None]
  - CHOLELITHIASIS [None]
  - CHOLECYSTITIS [None]
